FAERS Safety Report 24300181 (Version 1)
Quarter: 2024Q3

REPORT INFORMATION
  Report Type: Spontaneous
  Country: FR (occurrence: FR)
  Receive Date: 20240909
  Receipt Date: 20240909
  Transmission Date: 20241016
  Serious: Yes (Hospitalization, Other)
  Sender: MERCK
  Company Number: None

PATIENT
  Age: 65 Year
  Sex: Male
  Weight: 52 kg

DRUGS (3)
  1. KEYTRUDA [Suspect]
     Active Substance: PEMBROLIZUMAB
     Indication: Lung adenocarcinoma
     Dosage: 200 MILLIGRAM, CYCLICAL,  CONCENTRATION: 25 MG/ML, CONCENTRATE FOR SOLUTION FOR INFUSION
     Route: 042
     Dates: start: 20240725, end: 20240730
  2. ALIMTA [Suspect]
     Active Substance: PEMETREXED DISODIUM
     Indication: Lung adenocarcinoma
     Dosage: 795 MILLIGRAM, CYCLICAL, CONCENTRATION: 500 MG, POWDER FOR CONCENTRATE FOR SOLUTION FOR INFUSION
     Route: 042
     Dates: start: 20240725, end: 20240730
  3. CARBOPLATIN [Suspect]
     Active Substance: CARBOPLATIN
     Indication: Lung adenocarcinoma
     Dosage: UNK
     Dates: start: 20240725, end: 20240730

REACTIONS (2)
  - Atrial fibrillation [Recovered/Resolved]
  - Pericarditis [Recovered/Resolved]

NARRATIVE: CASE EVENT DATE: 20240806
